FAERS Safety Report 5131233-7 (Version None)
Quarter: 2006Q4

REPORT INFORMATION
  Report Type: 
  Country: None (occurrence: None)
  Receive Date: 20061020
  Receipt Date: 20060727
  Transmission Date: 20070319
  Serious: Yes (Death, Life-Threatening, Hospitalization)
  Sender: FDA-Public Use
  Company Number: AUWYE395628JUL06

PATIENT
  Sex: Female

DRUGS (6)
  1. ENBREL [Suspect]
     Indication: RHEUMATOID ARTHRITIS
     Dosage: UNKNOWN
     Route: 058
  2. ORUDIS - SLOW RELEASE [Concomitant]
     Dosage: 200 MG MANE
     Route: 048
  3. PLAQUENIL [Concomitant]
     Dosage: 200 MG NOCTE
     Route: 048
  4. ACETAMINOPHEN W/ CODEINE [Concomitant]
     Dosage: AVERAGE 8 A DAY
     Route: 048
  5. LEFLUNOMIDE [Concomitant]
     Dosage: 20 MG DAILY
     Route: 048
  6. PREDNISOLONE [Concomitant]
     Dosage: 7.5 MG DAILY
     Route: 048

REACTIONS (5)
  - BRAIN ABSCESS [None]
  - MIGRAINE [None]
  - RESPIRATORY DISTRESS [None]
  - SEPSIS [None]
  - STREPTOCOCCAL INFECTION [None]
